FAERS Safety Report 7724454-8 (Version None)
Quarter: 2011Q3

REPORT INFORMATION
  Report Type: 
  Country: None (occurrence: None)
  Receive Date: 20110901
  Receipt Date: 20110822
  Transmission Date: 20111222
  Serious: Yes (Other)
  Sender: FDA-Public Use
  Company Number: US-GLAXOSMITHKLINE-A0878757A

PATIENT
  Age: 72 Year
  Sex: Male
  Weight: 76 kg

DRUGS (1)
  1. AVANDIA [Suspect]
     Indication: DIABETES MELLITUS
     Dosage: 4MG PER DAY
     Route: 048

REACTIONS (5)
  - HEART INJURY [None]
  - CARDIAC ARREST [None]
  - FLUID RETENTION [None]
  - CORONARY ARTERY DISEASE [None]
  - FLUID OVERLOAD [None]
